FAERS Safety Report 21241508 (Version 1)
Quarter: 2022Q3

REPORT INFORMATION
  Report Type: Spontaneous
  Country: PE (occurrence: PE)
  Receive Date: 20220823
  Receipt Date: 20220823
  Transmission Date: 20221027
  Serious: Yes (Other)
  Sender: FDA-Public Use
  Company Number: PE-SUN PHARMACEUTICAL INDUSTRIES LTD-2022RR-351783

PATIENT
  Age: 51 Year
  Sex: Female

DRUGS (6)
  1. CLONAZEPAM [Suspect]
     Active Substance: CLONAZEPAM
     Indication: Depression
     Dosage: 1.5 MILLIGRAM, DAILY
     Route: 065
  2. CLONAZEPAM [Suspect]
     Active Substance: CLONAZEPAM
     Dosage: 2 MILLIGRAM, 4 OR 5 PILLS
     Route: 065
  3. FLUOXETINE [Suspect]
     Active Substance: FLUOXETINE HYDROCHLORIDE
     Indication: Depression
     Dosage: 20 MILLIGRAM, DAILY
     Route: 065
  4. DIAZEPAM [Suspect]
     Active Substance: DIAZEPAM
     Indication: Depression
     Dosage: 10 TO 20 MILLIGRAM
     Route: 042
  5. CHLORPROMAZINE [Concomitant]
     Active Substance: CHLORPROMAZINE
     Indication: Depression
     Dosage: 2 MILLIGRAM
     Route: 030
  6. HALOPERIDOL [Concomitant]
     Active Substance: HALOPERIDOL
     Indication: Depression
     Dosage: 5 MILLIGRAM
     Route: 030

REACTIONS (3)
  - Drug abuse [Unknown]
  - Product administration error [Unknown]
  - Libido decreased [Unknown]
